FAERS Safety Report 24319570 (Version 1)
Quarter: 2024Q3

REPORT INFORMATION
  Report Type: Report from Study
  Country: NL (occurrence: NL)
  Receive Date: 20240914
  Receipt Date: 20240914
  Transmission Date: 20241017
  Serious: Yes (Hospitalization, Other)
  Sender: ABBVIE
  Company Number: NL-ABBVIE-5921586

PATIENT
  Age: 72 Year
  Sex: Male

DRUGS (7)
  1. CARBIDOPA\LEVODOPA [Suspect]
     Active Substance: CARBIDOPA\LEVODOPA
     Indication: Parkinson^s disease
     Dosage: MD:7.0ML; CD:3.3 ML/H; ED:3.0ML?DURATION TEXT: REMAINS AT 16 HOURS.
     Route: 050
     Dates: start: 20240119, end: 20240319
  2. CARBIDOPA\LEVODOPA [Suspect]
     Active Substance: CARBIDOPA\LEVODOPA
     Dosage: MD:7.0ML; CD:3.3 ML/H; ED:3.0ML?DURATION TEXT: REMAINS AT 16 HOURS.
     Route: 050
     Dates: start: 20240731
  3. CARBIDOPA\LEVODOPA [Suspect]
     Active Substance: CARBIDOPA\LEVODOPA
     Dosage: MD:8.0ML; CD:2.2ML/H; ED:1.0ML;?DURATION TEXT: REMAINS AT 16 HOURS.
     Route: 050
     Dates: start: 20220919
  4. CARBIDOPA\LEVODOPA [Suspect]
     Active Substance: CARBIDOPA\LEVODOPA
     Dosage: MD:7.0ML; CD:3.3 ML/H; ED:3.0ML?DURATION TEXT: REMAINS AT 16 HOURS.
     Route: 050
     Dates: start: 20240319, end: 20240731
  5. ROPINIROLE [Concomitant]
     Active Substance: ROPINIROLE
     Indication: Product used for unknown indication
  6. BENSERAZIDE HYDROCHLORIDE\LEVODOPA [Concomitant]
     Active Substance: BENSERAZIDE HYDROCHLORIDE\LEVODOPA
     Indication: Product used for unknown indication
     Dosage: TIME INTERVAL: 0.33333333 DAYS
  7. POLYETHYLENE GLYCOLS [Concomitant]
     Active Substance: POLYETHYLENE GLYCOLS
     Indication: Abnormal faeces

REACTIONS (3)
  - Mechanical ileus [Unknown]
  - Device issue [Recovered/Resolved]
  - Volvulus [Unknown]
